FAERS Safety Report 10220647 (Version 1)
Quarter: 2014Q2

REPORT INFORMATION
  Report Type: Spontaneous
  Country: US (occurrence: None)
  Receive Date: 20140605
  Receipt Date: 20140605
  Transmission Date: 20141212
  Serious: Yes (Other)
  Sender: FDA-Public Use
  Company Number: None

PATIENT
  Age: 32 Year
  Sex: Female
  Weight: 81.65 kg

DRUGS (4)
  1. AMPHETAMINE SALTS [Suspect]
     Indication: ATTENTION DEFICIT/HYPERACTIVITY DISORDER
     Dosage: 1 THREE TIMES DAILY
     Route: 048
     Dates: start: 20140521, end: 20140604
  2. AMPHETAMINE SALTS [Suspect]
     Indication: OBSESSIVE-COMPULSIVE DISORDER
     Dosage: 1 THREE TIMES DAILY
     Route: 048
     Dates: start: 20140521, end: 20140604
  3. AMPHETAMINE SALTS [Suspect]
     Indication: POST-TRAUMATIC STRESS DISORDER
     Dosage: 1 THREE TIMES DAILY
     Route: 048
     Dates: start: 20140521, end: 20140604
  4. AMPHETAMINE SALTS [Suspect]
     Indication: DEPRESSION
     Dosage: 1 THREE TIMES DAILY
     Route: 048
     Dates: start: 20140521, end: 20140604

REACTIONS (2)
  - Drug ineffective [None]
  - Poor quality drug administered [None]
